FAERS Safety Report 9098981 (Version 2)
Quarter: 2013Q2

REPORT INFORMATION
  Report Type: Spontaneous
  Country: FR (occurrence: FR)
  Receive Date: 20130213
  Receipt Date: 20130514
  Transmission Date: 20140414
  Serious: No
  Sender: FDA-Public Use
  Company Number: FR-ASTELLAS-2013EU001217

PATIENT
  Age: 48 Year
  Sex: Female
  Weight: 78 kg

DRUGS (4)
  1. VESICARE [Suspect]
     Indication: URINARY INCONTINENCE
     Dosage: 5 MG, UID/QD
     Route: 048
     Dates: start: 201201, end: 20130115
  2. TAMOXIFENE [Concomitant]
     Indication: BREAST CANCER
     Dosage: 20 MG, UID/QD
     Route: 048
     Dates: start: 201201
  3. PARACETAMOL [Concomitant]
     Indication: PAIN
     Dosage: UNK G, UNKNOWN/D
     Route: 048
  4. STABLON [Concomitant]
     Indication: DEPRESSION
     Dosage: 12.5 MG, BID
     Route: 048
     Dates: start: 201207

REACTIONS (2)
  - Abdominal pain upper [Recovered/Resolved]
  - Transaminases increased [Recovering/Resolving]
